FAERS Safety Report 4303553-7 (Version None)
Quarter: 2004Q1

REPORT INFORMATION
  Report Type: 
  Country: None (occurrence: None)
  Receive Date: 20040223
  Receipt Date: 20040217
  Transmission Date: 20041129
  Serious: Yes (Hospitalization, Other)
  Sender: FDA-Public Use
  Company Number: 137634USA

PATIENT
  Age: 35 Year
  Sex: Female

DRUGS (1)
  1. COPAXONE [Suspect]
     Indication: MULTIPLE SCLEROSIS

REACTIONS (5)
  - ANAPHYLACTIC SHOCK [None]
  - COLLAPSE OF LUNG [None]
  - EMPHYSEMATOUS BULLA [None]
  - HAEMATOCRIT DECREASED [None]
  - HAEMOPNEUMOTHORAX [None]
